FAERS Safety Report 4558451-0 (Version None)
Quarter: 2005Q1

REPORT INFORMATION
  Report Type: 
  Country: None (occurrence: None)
  Receive Date: 20050121
  Receipt Date: 20050113
  Transmission Date: 20050727
  Serious: Yes (Hospitalization, Other)
  Sender: FDA-Public Use
  Company Number: PHRM2005FR00546

PATIENT

DRUGS (1)
  1. NEORAL [Suspect]
     Route: 048
     Dates: start: 20040401

REACTIONS (2)
  - HYPERTHYROIDISM [None]
  - SHOCK [None]
